FAERS Safety Report 8737294 (Version 4)
Quarter: 2015Q1

REPORT INFORMATION
  Report Type: Spontaneous
  Country: US (occurrence: US)
  Receive Date: 20120822
  Receipt Date: 20150212
  Transmission Date: 20150721
  Serious: Yes (Other)
  Sender: FDA-Public Use
  Company Number: US-ASTRAZENECA-2012SE59922

PATIENT
  Age: 57 Year
  Sex: Female
  Weight: 66.7 kg

DRUGS (20)
  1. CLONAZEPAM. [Concomitant]
     Active Substance: CLONAZEPAM
  2. COENZYME Q10 [Concomitant]
     Active Substance: UBIDECARENONE
  3. CVS VITAMIN E [Concomitant]
  4. RECLAST [Concomitant]
     Active Substance: ZOLEDRONIC ACID
     Dosage: 5 MG/100 ML, AS DIRECTED
  5. COLESTIPOL HCL [Concomitant]
     Active Substance: COLESTIPOL HYDROCHLORIDE
  6. NEXIUM [Suspect]
     Active Substance: ESOMEPRAZOLE MAGNESIUM
     Route: 048
  7. ASPIRIN. [Concomitant]
     Active Substance: ASPIRIN
  8. CYMBALTA [Concomitant]
     Active Substance: DULOXETINE HYDROCHLORIDE
  9. MIRALAX [Concomitant]
     Active Substance: POLYETHYLENE GLYCOL 3350
  10. CRESTOR [Suspect]
     Active Substance: ROSUVASTATIN CALCIUM
     Route: 048
  11. MELATONIN [Concomitant]
     Active Substance: MELATONIN
  12. CALCIUM + D [Concomitant]
     Active Substance: CALCIUM\VITAMIN D
     Dosage: 600-400 MG-UNIT ONCE A DAY
  13. NORCO [Concomitant]
     Active Substance: ACETAMINOPHEN\HYDROCODONE BITARTRATE
     Dosage: 10-325 MG, ONE EVERY SIX HOURS
  14. TEMAZEPAM. [Concomitant]
     Active Substance: TEMAZEPAM
  15. DURAGESIC [Concomitant]
     Active Substance: FENTANYL
     Dosage: 75 MCG/HR PT72 AS DIRECTED, ONE PATCH EVERY THREE DAYS
  16. LINZESS [Suspect]
     Active Substance: LINACLOTIDE
     Indication: ABDOMINAL DISCOMFORT
     Route: 048
  17. CELEXA [Concomitant]
     Active Substance: CITALOPRAM HYDROBROMIDE
  18. CLOZAPINE. [Concomitant]
     Active Substance: CLOZAPINE
  19. OXYBUTYNIN CHLORIDE. [Concomitant]
     Active Substance: OXYBUTYNIN CHLORIDE
  20. REMERON [Concomitant]
     Active Substance: MIRTAZAPINE

REACTIONS (18)
  - Pain [Unknown]
  - Vitamin D deficiency [Unknown]
  - Feeling abnormal [Unknown]
  - Abdominal distension [Unknown]
  - Rheumatic disorder [Unknown]
  - Skin papilloma [Unknown]
  - Oesophageal oedema [Unknown]
  - Mitral valve disease [Unknown]
  - Lipid metabolism disorder [Unknown]
  - Osteoarthritis [Unknown]
  - Back pain [Unknown]
  - Headache [Unknown]
  - Constipation [Unknown]
  - Breast cancer [Unknown]
  - Dry age-related macular degeneration [Unknown]
  - Diarrhoea [Unknown]
  - Depression [Unknown]
  - Osteoporosis [Unknown]
